APPROVED DRUG PRODUCT: PREDNICARBATE
Active Ingredient: PREDNICARBATE
Strength: 0.1%
Dosage Form/Route: CREAM;TOPICAL
Application: A077287 | Product #001
Applicant: FOUGERA PHARMACEUTICALS INC
Approved: Sep 19, 2006 | RLD: No | RS: No | Type: DISCN